FAERS Safety Report 13776656 (Version 1)
Quarter: 2017Q3

REPORT INFORMATION
  Report Type: Spontaneous
  Country: US (occurrence: US)
  Receive Date: 20170721
  Receipt Date: 20170721
  Transmission Date: 20171127
  Serious: Yes (Hospitalization)
  Sender: FDA-Public Use
  Company Number: None

PATIENT
  Age: 55 Year
  Sex: Female
  Weight: 89 kg

DRUGS (3)
  1. 5-FLUOROURACIL (5-FU) [Suspect]
     Active Substance: FLUOROURACIL
     Dates: end: 20141218
  2. LEUCOVORIN CALCIUM. [Suspect]
     Active Substance: LEUCOVORIN CALCIUM
     Dates: end: 20141216
  3. ELOXATIN [Suspect]
     Active Substance: OXALIPLATIN
     Dates: end: 20141216

REACTIONS (4)
  - Diarrhoea [None]
  - Fall [None]
  - Dizziness [None]
  - Nasal injury [None]

NARRATIVE: CASE EVENT DATE: 20150104
